FAERS Safety Report 10926392 (Version 2)
Quarter: 2015Q2

REPORT INFORMATION
  Report Type: Spontaneous
  Country: BR (occurrence: BR)
  Receive Date: 20150318
  Receipt Date: 20150407
  Transmission Date: 20150821
  Serious: Yes (Hospitalization)
  Sender: FDA-Public Use
  Company Number: BR-ASTRAZENECA-2015SE23095

PATIENT
  Age: 58 Year
  Sex: Female

DRUGS (9)
  1. ALENIA [Suspect]
     Active Substance: BUDESONIDE\FORMOTEROL FUMARATE
     Indication: ASTHMA
     Dosage: 12/400 MCG, TWO TIMES A DAY
     Route: 055
     Dates: start: 2011, end: 201502
  2. ASA [Concomitant]
     Active Substance: ASPIRIN
     Indication: INFARCTION
     Dosage: EVERY DAY
     Route: 048
  3. RIVOTRIL [Concomitant]
     Active Substance: CLONAZEPAM
     Indication: DEPRESSION
     Route: 048
     Dates: start: 201412
  4. SUSTRATE [Concomitant]
     Active Substance: PROPATYL NITRATE
     Indication: ARRHYTHMIA
     Dosage: THREE TIMES A DAY
     Route: 048
     Dates: start: 2013
  5. ASA [Concomitant]
     Active Substance: ASPIRIN
     Indication: ANTICOAGULANT THERAPY
     Dosage: EVERY DAY
     Route: 048
  6. UNKNOWN [Concomitant]
     Active Substance: UNSPECIFIED INGREDIENT
     Indication: BLOOD CHOLESTEROL ABNORMAL
     Dosage: AT NIGHT
     Route: 048
     Dates: start: 1998
  7. LOSARTAN [Concomitant]
     Active Substance: LOSARTAN
     Indication: BLOOD PRESSURE INCREASED
     Dosage: TWO TIMES A DAY
     Route: 048
     Dates: start: 2014
  8. DIAZEPAM. [Concomitant]
     Active Substance: DIAZEPAM
     Indication: DEPRESSION
     Route: 048
     Dates: start: 201412
  9. ALENIA [Suspect]
     Active Substance: BUDESONIDE\FORMOTEROL FUMARATE
     Indication: ASTHMA
     Dosage: 320/9 MCG,TWO TIMES A DAY -SYMBICORT
     Route: 055
     Dates: start: 201502

REACTIONS (10)
  - Diabetes mellitus [Recovered/Resolved]
  - Depression [Recovered/Resolved]
  - Underdose [Not Recovered/Not Resolved]
  - Diabetes mellitus inadequate control [Recovered/Resolved]
  - Fatigue [Not Recovered/Not Resolved]
  - Blood cholesterol abnormal [Recovered/Resolved]
  - Tachycardia [Recovered/Resolved]
  - Arrhythmia [Recovered/Resolved]
  - Lung infection [Recovered/Resolved]
  - Blood pressure increased [Recovered/Resolved]

NARRATIVE: CASE EVENT DATE: 2011
